FAERS Safety Report 6186798-3 (Version None)
Quarter: 2009Q2

REPORT INFORMATION
  Report Type: 
  Country: None (occurrence: None)
  Receive Date: 20090512
  Receipt Date: 20090420
  Transmission Date: 20091009
  Serious: Yes (Death, Hospitalization, Other)
  Sender: FDA-Public Use
  Company Number: DE-BAYER-200818122GPV

PATIENT
  Age: 72 Year
  Sex: Male
  Weight: 80 kg

DRUGS (6)
  1. CAMPATH [Suspect]
     Indication: B-CELL SMALL LYMPHOCYTIC LYMPHOMA
     Dosage: CYCLES
     Route: 058
     Dates: start: 20060101
  2. CAMPATH [Suspect]
     Dosage: 30 MG/D AT DAYS 1 - 3 PER CYCLE, CYCLE 5
     Route: 058
     Dates: start: 20060619, end: 20060621
  3. FLUDARABINE PHOSPHATE [Suspect]
     Indication: B-CELL SMALL LYMPHOCYTIC LYMPHOMA
     Dosage: 38 MG/D AT DAYS 1 - 3 PER CYCLE, CYCLE 5
     Route: 042
     Dates: start: 20060619, end: 20060621
  4. FLUDARABINE PHOSPHATE [Suspect]
     Dosage: CYCLES
     Route: 042
     Dates: start: 20060101
  5. CYCLOPHOSPHAMIDE [Suspect]
     Indication: B-CELL SMALL LYMPHOCYTIC LYMPHOMA
     Dosage: 380 MG/D AT DAYS 1 - 3 PER CYCLE, CYCLE 5
     Route: 042
     Dates: start: 20060619, end: 20060621
  6. CYCLOPHOSPHAMIDE [Suspect]
     Dosage: CYCLES
     Route: 042
     Dates: start: 20060101

REACTIONS (6)
  - DIVERTICULAR PERFORATION [None]
  - IMPAIRED HEALING [None]
  - MULTI-ORGAN FAILURE [None]
  - PERITONITIS [None]
  - PNEUMONIA [None]
  - SEPSIS [None]
